FAERS Safety Report 18844646 (Version 1)
Quarter: 2021Q1

REPORT INFORMATION
  Report Type: Report from Study
  Country: US (occurrence: US)
  Receive Date: 20210203
  Receipt Date: 20210203
  Transmission Date: 20210419
  Serious: No
  Sender: FDA-Public Use
  Company Number: US-EXELIXIS-CABO-20032068

PATIENT
  Sex: Female

DRUGS (2)
  1. CABOMETYX [Suspect]
     Active Substance: CABOZANTINIB S-MALATE
     Indication: RENAL CELL CARCINOMA
     Dosage: 40 MG, QD
     Route: 048
     Dates: start: 2017
  2. CABOMETYX [Suspect]
     Active Substance: CABOZANTINIB S-MALATE
     Dosage: 40 MG, QD
     Route: 048

REACTIONS (13)
  - Insomnia [Unknown]
  - Nausea [Unknown]
  - Vertigo [Unknown]
  - Product dose omission issue [Unknown]
  - Stomatitis [Recovered/Resolved]
  - Abdominal discomfort [Not Recovered/Not Resolved]
  - Hypertension [Not Recovered/Not Resolved]
  - Arthritis [Not Recovered/Not Resolved]
  - Weight decreased [Recovered/Resolved]
  - Diarrhoea [Recovering/Resolving]
  - Headache [Not Recovered/Not Resolved]
  - Fatigue [Not Recovered/Not Resolved]
  - Ageusia [Unknown]
